FAERS Safety Report 20894754 (Version 2)
Quarter: 2022Q2

REPORT INFORMATION
  Report Type: Spontaneous
  Country: JP (occurrence: JP)
  Receive Date: 20220531
  Receipt Date: 20220613
  Transmission Date: 20220721
  Serious: Yes (Hospitalization, Other)
  Sender: FDA-Public Use
  Company Number: JP-PFIZER INC-202200753049

PATIENT
  Age: 100 Year
  Sex: Male
  Weight: 50.3 kg

DRUGS (9)
  1. SPIRONOLACTONE [Suspect]
     Active Substance: SPIRONOLACTONE
     Dosage: 25 MG, 1X/DAY
     Route: 048
     Dates: end: 20220221
  2. TORSEMIDE [Suspect]
     Active Substance: TORSEMIDE
     Dosage: 8 MG, 1X/DAY
     Route: 048
     Dates: end: 20220221
  3. ASPIRIN [Concomitant]
     Active Substance: ASPIRIN
     Route: 048
  4. CARVEDILOL [Concomitant]
     Active Substance: CARVEDILOL
     Route: 048
  5. GASTER [Concomitant]
     Active Substance: FAMOTIDINE
     Route: 048
  6. FUROSEMIDE [Concomitant]
     Active Substance: FUROSEMIDE
     Route: 048
  7. FEBUXOSTAT [Concomitant]
     Active Substance: FEBUXOSTAT
     Route: 048
  8. NIFEDIPINE [Concomitant]
     Active Substance: NIFEDIPINE
     Route: 048
  9. BEPOTASTINE [BEPOTASTINE BESILATE] [Concomitant]
     Route: 048

REACTIONS (3)
  - Hyperkalaemia [Recovered/Resolved]
  - Femoral neck fracture [Unknown]
  - Fall [Unknown]

NARRATIVE: CASE EVENT DATE: 20220220
